FAERS Safety Report 6760338-X (Version None)
Quarter: 2010Q2

REPORT INFORMATION
  Report Type: 
  Country: None (occurrence: None)
  Receive Date: 20100608
  Receipt Date: 20100603
  Transmission Date: 20101027
  Serious: Yes (Death, Other)
  Sender: FDA-Public Use
  Company Number: GB-BAYER-201027460GPV

PATIENT
  Age: 74 Year
  Sex: Female

DRUGS (5)
  1. MOXIFLOXACIN [Suspect]
     Indication: CHRONIC OBSTRUCTIVE PULMONARY DISEASE
     Dosage: AS USED: 400 MG
     Route: 048
     Dates: start: 20100517, end: 20100517
  2. MOXIFLOXACIN [Suspect]
     Dosage: AS USED: 400 MG
     Route: 048
     Dates: start: 20100519, end: 20100519
  3. CEFUROXIME [Concomitant]
     Indication: INFECTION
     Route: 042
     Dates: start: 20100519, end: 20100521
  4. ENOXAPARIN SODIUM [Concomitant]
     Indication: DRUG USE FOR UNKNOWN INDICATION
     Route: 058
     Dates: start: 20100517, end: 20100522
  5. SPIRONOLACTONE [Concomitant]
     Indication: DRUG USE FOR UNKNOWN INDICATION
     Route: 048
     Dates: start: 20100516, end: 20100521

REACTIONS (4)
  - ALANINE AMINOTRANSFERASE INCREASED [None]
  - ASPARTATE AMINOTRANSFERASE INCREASED [None]
  - METABOLIC ACIDOSIS [None]
  - RENAL FAILURE ACUTE [None]
